FAERS Safety Report 17404199 (Version 1)
Quarter: 2020Q1

REPORT INFORMATION
  Report Type: Spontaneous
  Country: JP (occurrence: JP)
  Receive Date: 20200211
  Receipt Date: 20200211
  Transmission Date: 20200409
  Serious: Yes (Other)
  Sender: FDA-Public Use
  Company Number: JP-CELGENEUS-JPN-20200201053

PATIENT
  Age: 75 Year
  Sex: Male

DRUGS (3)
  1. LENADEX [Suspect]
     Active Substance: DEXAMETHASONE ACETATE
     Indication: PLASMA CELL MYELOMA
     Dosage: UNKNOWN
     Route: 048
     Dates: start: 20200115
  2. POMALYST [Suspect]
     Active Substance: POMALIDOMIDE
     Indication: PLASMA CELL MYELOMA
     Route: 048
     Dates: start: 20200115
  3. EMPLICITI [Suspect]
     Active Substance: ELOTUZUMAB
     Indication: PLASMA CELL MYELOMA
     Dosage: UNKNOWN
     Route: 065
     Dates: start: 20200115

REACTIONS (2)
  - Electrocardiogram QT prolonged [Recovering/Resolving]
  - Electrolyte imbalance [Unknown]

NARRATIVE: CASE EVENT DATE: 20200204
